FAERS Safety Report 14709264 (Version 2)
Quarter: 2018Q2

REPORT INFORMATION
  Report Type: Report from Study
  Country: GB (occurrence: GB)
  Receive Date: 20180403
  Receipt Date: 20180518
  Transmission Date: 20180711
  Serious: Yes (Other)
  Sender: FDA-Public Use
  Company Number: GB-JNJFOC-20180311158

PATIENT
  Age: 63 Year
  Sex: Female

DRUGS (1)
  1. SIMPONI [Suspect]
     Active Substance: GOLIMUMAB
     Indication: PRODUCT USED FOR UNKNOWN INDICATION
     Route: 058

REACTIONS (7)
  - Injection site pain [Recovered/Resolved]
  - Drug dose omission [Unknown]
  - Product storage error [Unknown]
  - Neoplasm malignant [Unknown]
  - Injection site bruising [Recovered/Resolved]
  - Surgery [Unknown]
  - Arthritis [Unknown]

NARRATIVE: CASE EVENT DATE: 2018
